FAERS Safety Report 25773017 (Version 1)
Quarter: 2025Q3

REPORT INFORMATION
  Report Type: Other
  Country: YE (occurrence: YE)
  Receive Date: 20250908
  Receipt Date: 20250908
  Transmission Date: 20251020
  Serious: Yes (Hospitalization, Other)
  Sender: ANI
  Company Number: YE-ANIPHARMA-030470

PATIENT
  Age: 25 Year
  Sex: Male

DRUGS (1)
  1. CLOBETASOL [Suspect]
     Active Substance: CLOBETASOL
     Indication: Dry skin

REACTIONS (2)
  - Intentional product misuse [Unknown]
  - Cushing^s syndrome [Recovering/Resolving]
